FAERS Safety Report 6490039-7 (Version None)
Quarter: 2009Q4

REPORT INFORMATION
  Report Type: 
  Country: None (occurrence: None)
  Receive Date: 20091211
  Receipt Date: 20091203
  Transmission Date: 20100525
  Serious: Yes (Hospitalization)
  Sender: FDA-Public Use
  Company Number: DE-ROCHE-660509

PATIENT
  Age: 64 Year
  Sex: Female
  Weight: 74.9 kg

DRUGS (16)
  1. CELLCEPT [Suspect]
     Route: 048
     Dates: start: 20081101, end: 20090902
  2. CELLCEPT [Suspect]
     Route: 048
     Dates: start: 20090903, end: 20090903
  3. CELLCEPT [Suspect]
     Route: 048
     Dates: start: 20090904
  4. CELLCEPT [Suspect]
     Dosage: DOSE REDUCED
     Route: 048
     Dates: start: 20091101
  5. ALLOPURINOL [Suspect]
     Indication: HYPERURICAEMIA
     Route: 048
     Dates: start: 20090417, end: 20090903
  6. PROGRAF [Suspect]
     Route: 048
     Dates: start: 20081101, end: 20090902
  7. PROGRAF [Suspect]
     Route: 048
     Dates: start: 20090910
  8. ASPIRIN [Concomitant]
     Indication: TACHYARRHYTHMIA
     Route: 048
     Dates: start: 20081101, end: 20090902
  9. DECORTIN-H [Concomitant]
     Indication: RENAL TRANSPLANT
     Dosage: FORM: 245 (TABLET)
     Route: 048
     Dates: start: 20081101
  10. EINSALPHA [Concomitant]
     Indication: CALCIUM DEFICIENCY
     Dosage: FORM: 5 (CAPSULE)
     Route: 048
     Dates: start: 20081101
  11. HALCION [Concomitant]
     Dosage: FORM: 245 (TABLET)
     Route: 048
     Dates: start: 20090801, end: 20090817
  12. LANSOPRAZOLE [Concomitant]
     Dosage: FORM: 90 GASTRO RESISTANT CAPSULE, INTAKE IN  THE COURSE OF A STUDY
     Route: 048
     Dates: start: 20040101, end: 20080101
  13. METOHEXAL [Concomitant]
     Indication: HYPERTENSION
     Dosage: FORM: 212 PROLONGED RELEASE TABLET
     Route: 048
     Dates: start: 20080501
  14. PANTOZOL [Concomitant]
     Dosage: FORM: 90 GASTRO RESISTANT CAPSULE
     Route: 048
     Dates: start: 20070101
  15. PRESOMEN [Concomitant]
     Dosage: FORM: 82 (FILM COATED TABLET)
     Route: 048
     Dates: start: 20030101, end: 20070101
  16. TORASEMIDE [Concomitant]
     Indication: HYPERTENSION
     Dosage: FORM: 245 TABLET
     Route: 048
     Dates: start: 20081101

REACTIONS (3)
  - C-REACTIVE PROTEIN INCREASED [None]
  - DIARRHOEA [None]
  - LIVER FUNCTION TEST ABNORMAL [None]
